FAERS Safety Report 12613364 (Version 1)
Quarter: 2016Q3

REPORT INFORMATION
  Report Type: Spontaneous
  Country: US (occurrence: None)
  Receive Date: 20160801
  Receipt Date: 20160801
  Transmission Date: 20161109
  Serious: Yes (Death, Hospitalization)
  Sender: FDA-Public Use
  Company Number: None

PATIENT
  Age: 55 Year
  Sex: Male
  Weight: 88.6 kg

DRUGS (3)
  1. TAXOL [Suspect]
     Active Substance: PACLITAXEL
     Dates: end: 20160615
  2. NEULASTA [Concomitant]
     Active Substance: PEGFILGRASTIM
  3. CARBOPLATIN. [Suspect]
     Active Substance: CARBOPLATIN
     Dates: end: 20160615

REACTIONS (2)
  - Haemoptysis [None]
  - Cardiac arrest [None]

NARRATIVE: CASE EVENT DATE: 20160617
